FAERS Safety Report 9853673 (Version 1)
Quarter: 2014Q1

REPORT INFORMATION
  Report Type: Spontaneous
  Country: JP (occurrence: JP)
  Receive Date: 20140129
  Receipt Date: 20140129
  Transmission Date: 20141002
  Serious: Yes (Other)
  Sender: FDA-Public Use
  Company Number: JP-B.I. PHARMACEUTICALS,INC./RIDGEFIELD-2014-BI-03328NB

PATIENT
  Sex: Male

DRUGS (5)
  1. SPIRIVA [Suspect]
     Route: 055
  2. MAINTATE [Concomitant]
     Dosage: UNK
     Route: 048
  3. PLAVIX [Concomitant]
     Dosage: UNK
     Route: 048
  4. ASPIRIN [Concomitant]
     Dosage: UNK
     Route: 048
  5. UNKNOWNDRUG [Concomitant]
     Route: 065

REACTIONS (5)
  - Cardiac disorder [Unknown]
  - Burning sensation [Unknown]
  - Oxygen saturation decreased [Unknown]
  - Blood pressure decreased [Unknown]
  - Dyspnoea [Unknown]
